FAERS Safety Report 18039615 (Version 1)
Quarter: 2020Q3

REPORT INFORMATION
  Report Type: Spontaneous
  Country: US (occurrence: US)
  Receive Date: 20200717
  Receipt Date: 20200717
  Transmission Date: 20201103
  Serious: Yes (Life-Threatening, Hospitalization)
  Sender: FDA-Public Use
  Company Number: US-MYLANLABS-2020M1064962

PATIENT
  Age: 47 Year
  Sex: Male

DRUGS (13)
  1. MIDAZOLAM. [Suspect]
     Active Substance: MIDAZOLAM
     Indication: ALCOHOL USE DISORDER
     Dosage: CLINICAL INSTITUTE FOR WITHDRAWAL ASSESSMENT OF ALCOHOL, REVISED..
     Route: 065
  2. FLUMAZENIL. [Concomitant]
     Active Substance: FLUMAZENIL
     Indication: OVERDOSE
     Dosage: 0.2 MILLIGRAM
     Route: 042
  3. DEXMEDETOMIDINE. [Concomitant]
     Active Substance: DEXMEDETOMIDINE
     Indication: AGITATION
     Dosage: INFUSION TITRATED TO TARGET RICHMOND AGITATION?SEDATION SCALE (RASS) SCORES OF 0 TO ?2
  4. MIDAZOLAM. [Suspect]
     Active Substance: MIDAZOLAM
     Indication: ALCOHOL USE DISORDER
     Dosage: INFUSION TITRATED TO TARGET RICHMOND AGITATION?SEDATION SCALE (RASS) SCORES OF 0 TO ?2
  5. MIDAZOLAM. [Suspect]
     Active Substance: MIDAZOLAM
     Dosage: ON HOSPITAL DAY 5
     Route: 042
  6. EPINEPHRINE. [Concomitant]
     Active Substance: EPINEPHRINE
     Indication: CARDIAC ARREST
     Route: 042
  7. PROPOFOL. [Concomitant]
     Active Substance: PROPOFOL
     Indication: AGITATION
     Dosage: INFUSION TITRATED TO TARGET RICHMOND AGITATION?SEDATION SCALE (RASS) SCORES OF 0 TO ?2
  8. RISPERIDONE. [Concomitant]
     Active Substance: RISPERIDONE
     Dosage: UNK
     Route: 065
  9. NALOXONE [Concomitant]
     Active Substance: NALOXONE
     Indication: OVERDOSE
     Route: 042
  10. QUETIAPINE. [Concomitant]
     Active Substance: QUETIAPINE
     Indication: PRODUCT USED FOR UNKNOWN INDICATION
     Dosage: UNK
     Route: 065
  11. RISPERIDONE. [Concomitant]
     Active Substance: RISPERIDONE
     Dosage: STARTED AT A LOW DOSE BY THE PRIMARY TEAM
     Route: 065
  12. ALPRAZOLAM. [Suspect]
     Active Substance: ALPRAZOLAM
     Indication: PRODUCT USED FOR UNKNOWN INDICATION
     Dosage: HE HAD INGESTED ALPRAZOLAM.
     Route: 048
  13. RISPERIDONE. [Concomitant]
     Active Substance: RISPERIDONE
     Indication: SCHIZOAFFECTIVE DISORDER DEPRESSIVE TYPE
     Dosage: UNK
     Route: 065

REACTIONS (17)
  - Depressed level of consciousness [Recovered/Resolved]
  - Delirium [Recovering/Resolving]
  - Disorientation [Recovered/Resolved]
  - Psychotic disorder [Recovering/Resolving]
  - Respiratory rate increased [Recovered/Resolved]
  - Fall [Recovered/Resolved]
  - Agitation [Recovered/Resolved]
  - Hallucination, auditory [Recovered/Resolved]
  - Cardiac arrest [Recovered/Resolved]
  - Thinking abnormal [Recovering/Resolving]
  - Heart rate increased [Recovered/Resolved]
  - Delusion [Recovered/Resolved]
  - Disturbance in attention [Recovered/Resolved]
  - Overdose [Recovering/Resolving]
  - Toxicity to various agents [Recovering/Resolving]
  - Condition aggravated [Recovering/Resolving]
  - Blood pressure increased [Recovered/Resolved]
